FAERS Safety Report 11852253 (Version 2)
Quarter: 2019Q2

REPORT INFORMATION
  Report Type: Spontaneous
  Country: US (occurrence: US)
  Receive Date: 20151218
  Receipt Date: 20190621
  Transmission Date: 20190711
  Serious: Yes (Death, Hospitalization, Other)
  Sender: FDA-Public Use
  Company Number: US-009507513-1512USA009194

PATIENT
  Sex: Female
  Weight: 68.48 kg

DRUGS (6)
  1. BYETTA [Suspect]
     Active Substance: EXENATIDE
     Indication: TYPE 2 DIABETES MELLITUS
     Dosage: 5 MCG TWICE DAILY
     Dates: start: 20081114, end: 201204
  2. VICTOZA [Suspect]
     Active Substance: LIRAGLUTIDE
     Dosage: 0.6 MILLIGRAM, ONCE DAILY
     Dates: start: 20120720, end: 201210
  3. PREDNISONE. [Suspect]
     Active Substance: PREDNISONE
     Dosage: 10 MG DAILY
  4. JANUVIA [Suspect]
     Active Substance: SITAGLIPTIN PHOSPHATE
     Indication: TYPE 2 DIABETES MELLITUS
     Dosage: 100 MG ONCE DAILY
     Route: 048
     Dates: start: 20080117, end: 200906
  5. BYETTA [Suspect]
     Active Substance: EXENATIDE
     Dosage: 10 MCG TWICE DAILY
     Dates: start: 20081114, end: 201204
  6. METFORMIN [Concomitant]
     Active Substance: METFORMIN HYDROCHLORIDE
     Indication: TYPE 2 DIABETES MELLITUS
     Dosage: 850 MG THREE TIMES DAILY

REACTIONS (15)
  - Metastases to lymph nodes [Unknown]
  - Electrocardiogram T wave abnormal [Recovered/Resolved]
  - Ductal adenocarcinoma of pancreas [Fatal]
  - Liver function test abnormal [Recovered/Resolved]
  - Diabetes mellitus inadequate control [Unknown]
  - Neuropathy peripheral [Not Recovered/Not Resolved]
  - Incision site erythema [Recovered/Resolved]
  - Coronary artery disease [Unknown]
  - Urine output decreased [Recovered/Resolved]
  - Gingivitis [Not Recovered/Not Resolved]
  - Hypoglycaemia [Unknown]
  - Fluid overload [Recovered/Resolved]
  - Arteriosclerosis [Unknown]
  - Hyperglycaemia [Not Recovered/Not Resolved]
  - Diarrhoea [Recovered/Resolved]

NARRATIVE: CASE EVENT DATE: 2010
